FAERS Safety Report 8818357 (Version 2)
Quarter: 2012Q4

REPORT INFORMATION
  Report Type: 
  Country: US (occurrence: US)
  Receive Date: 20121001
  Receipt Date: 20121227
  Transmission Date: 20130627
  Serious: Yes (Hospitalization, Other)
  Sender: FDA-Public Use
  Company Number: US-ASTRAZENECA-2012SE73652

PATIENT
  Age: 74 Year
  Sex: Male
  Weight: 96.2 kg

DRUGS (8)
  1. NEXIUM [Suspect]
     Indication: GASTROOESOPHAGEAL REFLUX DISEASE
     Route: 048
  2. NEXIUM [Suspect]
     Indication: GASTROOESOPHAGEAL REFLUX DISEASE
     Route: 048
  3. NEXIUM [Suspect]
     Indication: GASTROOESOPHAGEAL REFLUX DISEASE
     Route: 048
  4. GLYPIZIDE [Concomitant]
     Indication: DYSPEPSIA
     Route: 048
  5. NORVASC [Concomitant]
     Indication: BLOOD PRESSURE
     Route: 048
     Dates: start: 2009
  6. AMBIEN [Concomitant]
     Indication: INSOMNIA
     Route: 048
  7. DAPTOMYCIN [Concomitant]
     Indication: INFECTION
     Dosage: DAILY
     Route: 042
     Dates: start: 201206
  8. DOXYCLINE [Concomitant]
     Indication: INFECTION
     Dosage: TWO TIMES DAY
     Route: 048
     Dates: start: 2010

REACTIONS (13)
  - Staphylococcal infection [Unknown]
  - Femur fracture [Unknown]
  - Abscess intestinal [Unknown]
  - Oedema [Unknown]
  - Insomnia [Not Recovered/Not Resolved]
  - Retching [Not Recovered/Not Resolved]
  - Abdominal distension [Recovered/Resolved]
  - Nausea [Not Recovered/Not Resolved]
  - Vomiting [Not Recovered/Not Resolved]
  - Condition aggravated [Unknown]
  - Intentional drug misuse [Unknown]
  - Off label use [Unknown]
  - Drug ineffective [Unknown]
